FAERS Safety Report 24698384 (Version 1)
Quarter: 2024Q4

REPORT INFORMATION
  Report Type: Spontaneous
  Country: US (occurrence: US)
  Receive Date: 20241204
  Receipt Date: 20241204
  Transmission Date: 20250115
  Serious: No
  Sender: PRIMUS PHARMACEUTICALS
  Company Number: US-PRIMUS-2023-US-041478

PATIENT
  Age: 49 Year
  Sex: Female

DRUGS (1)
  1. IMPOYZ [Suspect]
     Active Substance: CLOBETASOL PROPIONATE
     Indication: Product used for unknown indication
     Dosage: APPLY TOPICALLY TO THE AFFECTED AREA(S) OF RASH AND OR SCALE ON THE FACE ONCE DAILY APPLY TOPICALLY
     Route: 061
     Dates: start: 20231013, end: 20231204

REACTIONS (2)
  - Drug ineffective [Unknown]
  - Condition aggravated [Unknown]
